FAERS Safety Report 18468068 (Version 1)
Quarter: 2020Q4

REPORT INFORMATION
  Report Type: Spontaneous
  Country: CN (occurrence: CN)
  Receive Date: 20201105
  Receipt Date: 20201105
  Transmission Date: 20210114
  Serious: Yes (Life-Threatening)
  Sender: FDA-Public Use
  Company Number: CN-BAYER-2020-231430

PATIENT
  Age: 58 Year
  Sex: Male

DRUGS (2)
  1. VORICONAZOLE. [Suspect]
     Active Substance: VORICONAZOLE
     Indication: PNEUMONIA
     Dosage: 200 MG, BID
     Route: 048
     Dates: start: 20191027, end: 20191104
  2. AVELOX [Suspect]
     Active Substance: MOXIFLOXACIN HYDROCHLORIDE
     Indication: PNEUMONIA
     Dosage: 400 MG, QD
     Route: 048
     Dates: start: 20191027, end: 20191104

REACTIONS (3)
  - Muscular weakness [Recovered/Resolved]
  - Hypokalaemia [Recovered/Resolved]
  - Hypoaesthesia [None]

NARRATIVE: CASE EVENT DATE: 20191104
